FAERS Safety Report 12758725 (Version 1)
Quarter: 2016Q3

REPORT INFORMATION
  Report Type: Spontaneous
  Country: US (occurrence: US)
  Receive Date: 20160918
  Receipt Date: 20160918
  Transmission Date: 20161109
  Serious: No
  Sender: FDA-Public Use
  Company Number: None

PATIENT
  Age: 67 Year
  Sex: Male
  Weight: 78.75 kg

DRUGS (3)
  1. FLOMAX [Concomitant]
     Active Substance: TAMSULOSIN HYDROCHLORIDE
  2. HYOSCYAMINE SULFATE VIRTUS [Suspect]
     Active Substance: HYOSCYAMINE SULFATE
     Indication: BLADDER SPASM
     Route: 060
     Dates: start: 20160912, end: 20160913
  3. HYOSCYAMINE SULFATE VIRTUS [Suspect]
     Active Substance: HYOSCYAMINE SULFATE
     Indication: BLADDER IRRITATION
     Route: 060
     Dates: start: 20160912, end: 20160913

REACTIONS (5)
  - Nausea [None]
  - Body temperature increased [None]
  - Dizziness [None]
  - Dry mouth [None]
  - Presyncope [None]

NARRATIVE: CASE EVENT DATE: 20160913
